FAERS Safety Report 7802868-5 (Version None)
Quarter: 2011Q4

REPORT INFORMATION
  Report Type: 
  Country: None (occurrence: None)
  Receive Date: 20111007
  Receipt Date: 20100922
  Transmission Date: 20120403
  Serious: No
  Sender: FDA-Public Use
  Company Number: US-MUTUAL PHARMACEUTICAL COMPANY, INC.-2010P1001602

PATIENT
  Age: 50 Year
  Sex: Female

DRUGS (2)
  1. WHISKEY [Concomitant]
     Route: 048
  2. QUALAQUIN [Suspect]
     Route: 048

REACTIONS (2)
  - OVERDOSE [None]
  - BLINDNESS [None]
